FAERS Safety Report 11759934 (Version 1)
Quarter: 2015Q4

REPORT INFORMATION
  Report Type: Spontaneous
  Country: US (occurrence: US)
  Receive Date: 20151120
  Receipt Date: 20151120
  Transmission Date: 20160304
  Serious: No
  Sender: FDA-Public Use
  Company Number: US-ELI_LILLY_AND_COMPANY-US201210008456

PATIENT
  Age: 71 Year
  Sex: Male

DRUGS (2)
  1. FORTEO [Suspect]
     Active Substance: TERIPARATIDE
     Dosage: UNK, QD
     Dates: start: 20121001
  2. FORTEO [Suspect]
     Active Substance: TERIPARATIDE
     Dosage: UNK

REACTIONS (2)
  - Incorrect drug administration duration [Unknown]
  - Gastrooesophageal reflux disease [Unknown]

NARRATIVE: CASE EVENT DATE: 20121001
